FAERS Safety Report 11552208 (Version 1)
Quarter: 2015Q3

REPORT INFORMATION
  Report Type: Spontaneous
  Country: US (occurrence: None)
  Receive Date: 20150924
  Receipt Date: 20150924
  Transmission Date: 20151125
  Serious: Yes (Hospitalization, Disabling, Other)
  Sender: FDA-Public Use
  Company Number: None

PATIENT
  Age: 33 Year
  Sex: Female
  Weight: 65.77 kg

DRUGS (7)
  1. LYRICA [Concomitant]
     Active Substance: PREGABALIN
  2. NORCO [Concomitant]
     Active Substance: ACETAMINOPHEN\HYDROCODONE BITARTRATE
  3. BACTRIM [Suspect]
     Active Substance: SULFAMETHOXAZOLE\TRIMETHOPRIM
     Indication: URINARY TRACT INFECTION
     Dates: start: 20150725, end: 20150729
  4. SYNTHROID [Concomitant]
     Active Substance: LEVOTHYROXINE SODIUM
  5. ROBAXIN [Concomitant]
     Active Substance: METHOCARBAMOL
  6. CRANBERRY. [Concomitant]
     Active Substance: CRANBERRY
  7. FLORAJEN [Concomitant]

REACTIONS (4)
  - Swelling [None]
  - Skin burning sensation [None]
  - Stevens-Johnson syndrome [None]
  - Cardiac disorder [None]

NARRATIVE: CASE EVENT DATE: 20150729
